FAERS Safety Report 7587607-8 (Version None)
Quarter: 2011Q3

REPORT INFORMATION
  Report Type: 
  Country: None (occurrence: None)
  Receive Date: 20110704
  Receipt Date: 20110621
  Transmission Date: 20111222
  Serious: Yes (Other)
  Sender: FDA-Public Use
  Company Number: PHHY2011AU54593

PATIENT
  Sex: Female

DRUGS (1)
  1. ESTALIS CONTINUOUS [Suspect]
     Route: 062

REACTIONS (6)
  - TONGUE ULCERATION [None]
  - RASH [None]
  - VAGINAL HAEMORRHAGE [None]
  - FEELING ABNORMAL [None]
  - FATIGUE [None]
  - DRUG INTOLERANCE [None]
